FAERS Safety Report 10790073 (Version 1)
Quarter: 2015Q1

REPORT INFORMATION
  Report Type: Spontaneous
  Country: FR (occurrence: FR)
  Receive Date: 20150212
  Receipt Date: 20150212
  Transmission Date: 20150721
  Serious: Yes (Life-Threatening)
  Sender: FDA-Public Use
  Company Number: FR-SHIRE-FR201501230

PATIENT
  Age: 62 Year
  Sex: Female

DRUGS (2)
  1. KARDEGIC [Concomitant]
     Active Substance: ASPIRIN LYSINE
     Indication: THROMBOCYTOSIS
     Dosage: 75 MG, UNKNOWN (PER DAY)
     Route: 065
     Dates: start: 2009
  2. XAGRID [Suspect]
     Active Substance: ANAGRELIDE HYDROCHLORIDE
     Indication: THROMBOCYTOSIS
     Dosage: 0.5 MG CAPSULES, 2 TO 3 PER DAY
     Route: 048
     Dates: start: 2009

REACTIONS (3)
  - Anaemia [Recovering/Resolving]
  - Tachycardia [Unknown]
  - Ventricular extrasystoles [Recovered/Resolved]

NARRATIVE: CASE EVENT DATE: 20150119
